FAERS Safety Report 15743102 (Version 3)
Quarter: 2019Q1

REPORT INFORMATION
  Report Type: Spontaneous
  Country: US (occurrence: US)
  Receive Date: 20181220
  Receipt Date: 20190329
  Transmission Date: 20190417
  Serious: Yes (Death)
  Sender: FDA-Public Use
  Company Number: US-ABBVIE-18K-163-2596497-00

PATIENT
  Age: 31 Year
  Sex: Male

DRUGS (5)
  1. CATHFLO ACTIVASE [Suspect]
     Active Substance: ALTEPLASE
     Indication: COMPLICATION ASSOCIATED WITH DEVICE
     Route: 065
  2. ACTIVASE [Suspect]
     Active Substance: ALTEPLASE
     Indication: EMBOLIC CEREBRAL INFARCTION
     Route: 065
     Dates: start: 20161005
  3. VENCLEXTA [Suspect]
     Active Substance: VENETOCLAX
     Indication: ACUTE MYELOID LEUKAEMIA
     Dosage: TAKE 4 -100 MG TABLETS BY MOUTH ONCE DAILY
     Route: 048
  4. CATHFLO ACTIVASE [Suspect]
     Active Substance: ALTEPLASE
     Indication: MEDICAL DEVICE IMPLANTATION
  5. CATHFLO ACTIVASE [Suspect]
     Active Substance: ALTEPLASE
     Indication: TRANSPLANT

REACTIONS (2)
  - Death [Fatal]
  - Intentional product use issue [Unknown]

NARRATIVE: CASE EVENT DATE: 20181210
